FAERS Safety Report 10190285 (Version 3)
Quarter: 2014Q3

REPORT INFORMATION
  Report Type: Spontaneous
  Country: US (occurrence: US)
  Receive Date: 20140522
  Receipt Date: 20140701
  Transmission Date: 20150326
  Serious: No
  Sender: FDA-Public Use
  Company Number: US-ASTRAZENECA-2013SE93077

PATIENT
  Age: 922 Month
  Sex: Female
  Weight: 63.5 kg

DRUGS (5)
  1. A LOT OF UNSPECIFIED ASTHMA MEDICATIONS [Concomitant]
     Indication: ASTHMA
  2. PULMICORT FLEXHALER [Suspect]
     Active Substance: BUDESONIDE
     Indication: ASTHMA
     Dosage: 180 MCG, 1 OR 2 PUFFS TWICE DAILY
     Route: 055
  3. PULMICORT FLEXHALER [Suspect]
     Active Substance: BUDESONIDE
     Indication: ASTHMA
     Dosage: 180 MCG, 2 PUFFS BID
     Route: 055
  4. PULMICORT FLEXHALER [Suspect]
     Active Substance: BUDESONIDE
     Indication: ASTHMA
     Dosage: 180 MCG 1 OR 2 PUFFS TWICE DAILY
     Route: 055
     Dates: start: 20131124
  5. ALVESCO [Concomitant]
     Active Substance: CICLESONIDE

REACTIONS (3)
  - Diabetes mellitus [Unknown]
  - Intentional product misuse [Unknown]
  - Circumstance or information capable of leading to medication error [Unknown]

NARRATIVE: CASE EVENT DATE: 201311
